FAERS Safety Report 10203449 (Version 3)
Quarter: 2014Q4

REPORT INFORMATION
  Report Type: Spontaneous
  Country: BE (occurrence: BE)
  Receive Date: 20140529
  Receipt Date: 20141022
  Transmission Date: 20150528
  Serious: Yes (Other)
  Sender: FDA-Public Use
  Company Number: BE-AMGEN-BELSP2014038630

PATIENT
  Age: 78 Year
  Sex: Female

DRUGS (4)
  1. ALGOSTASE [Concomitant]
  2. PROLIA [Suspect]
     Active Substance: DENOSUMAB
     Indication: OSTEOPOROTIC FRACTURE
     Dosage: 60 MG, Q6MO
     Route: 058
     Dates: start: 2012, end: 201405
  3. REDOMEX [Concomitant]
  4. CALCIT                             /00514701/ [Concomitant]

REACTIONS (1)
  - Osteonecrosis of jaw [Not Recovered/Not Resolved]

NARRATIVE: CASE EVENT DATE: 201403
